FAERS Safety Report 7312395-X (Version None)
Quarter: 2011Q1

REPORT INFORMATION
  Report Type: 
  Country: None (occurrence: None)
  Receive Date: 20110214
  Receipt Date: 20100303
  Transmission Date: 20110831
  Serious: Yes (Other)
  Sender: FDA-Public Use
  Company Number: 513798

PATIENT
  Age: 43 Year
  Sex: Female
  Weight: 54 kg

DRUGS (3)
  1. SEVOFLURANE [Concomitant]
  2. DEXMEDETOMIDINE HYDROCHLORIDE [Suspect]
     Indication: ENDOTRACHEAL INTUBATION
     Dosage: 6 MCG/KG/HR INTRAVENOUS (NOT OTHERWISE SPECIFIED)
     Route: 042
     Dates: start: 20100215, end: 20100215
  3. DEXMEDETOMIDINE HYDROCHLORIDE [Suspect]
     Indication: ENDOTRACHEAL INTUBATION
     Dosage: 6 MCG/KG/HR INTRAVENOUS (NOT OTHERWISE SPECIFIED)
     Route: 042
     Dates: start: 20100215, end: 20100215

REACTIONS (3)
  - ASTHMA [None]
  - URTICARIA [None]
  - HYPERSENSITIVITY [None]
